FAERS Safety Report 6160147-9 (Version None)
Quarter: 2009Q2

REPORT INFORMATION
  Report Type: 
  Country: None (occurrence: None)
  Receive Date: 20090420
  Receipt Date: 20090410
  Transmission Date: 20091009
  Serious: Yes (Hospitalization, Congenital Anomaly)
  Sender: FDA-Public Use
  Company Number: A0751151A

PATIENT
  Sex: Male
  Weight: 2.2 kg

DRUGS (4)
  1. PAXIL [Suspect]
     Indication: DEPRESSION
     Dates: start: 19990101, end: 20060101
  2. PAROXETINE HCL [Suspect]
     Indication: DEPRESSION
     Dates: start: 20050504, end: 20060301
  3. VITAMIN TAB [Concomitant]
  4. PROCARDIA XL [Concomitant]

REACTIONS (6)
  - CARDIAC MURMUR [None]
  - DEFORMITY THORAX [None]
  - DRUG EXPOSURE DURING PREGNANCY [None]
  - HEART DISEASE CONGENITAL [None]
  - PLAGIOCEPHALY [None]
  - TRISOMY 21 [None]
